FAERS Safety Report 6660311-6 (Version None)
Quarter: 2010Q1

REPORT INFORMATION
  Report Type: 
  Country: None (occurrence: None)
  Receive Date: 20100331
  Receipt Date: 20100322
  Transmission Date: 20100710
  Serious: No
  Sender: FDA-Public Use
  Company Number: 2010BI004800

PATIENT
  Age: 34 Year
  Sex: Male

DRUGS (1)
  1. TYSABRI [Suspect]
     Indication: MULTIPLE SCLEROSIS
     Route: 042
     Dates: start: 20080410, end: 20091217

REACTIONS (3)
  - DRUG SPECIFIC ANTIBODY PRESENT [None]
  - FATIGUE [None]
  - SECONDARY PROGRESSIVE MULTIPLE SCLEROSIS [None]
